FAERS Safety Report 15491358 (Version 1)
Quarter: 2018Q4

REPORT INFORMATION
  Report Type: Report from Study
  Country: US (occurrence: US)
  Receive Date: 20181012
  Receipt Date: 20181012
  Transmission Date: 20190205
  Serious: Yes (Hospitalization)
  Sender: FDA-Public Use
  Company Number: US-EMD SERONO-E2B_90061449

PATIENT
  Sex: Female

DRUGS (1)
  1. REBIF [Suspect]
     Active Substance: INTERFERON BETA-1A
     Indication: PRODUCT USED FOR UNKNOWN INDICATION
     Route: 058
     Dates: start: 20070904

REACTIONS (4)
  - Drug hypersensitivity [Unknown]
  - Arthropathy [Unknown]
  - Bursitis [Unknown]
  - Arthritis [Unknown]

NARRATIVE: CASE EVENT DATE: 2017
